FAERS Safety Report 15690093 (Version 1)
Quarter: 2018Q4

REPORT INFORMATION
  Report Type: Spontaneous
  Country: DE (occurrence: DE)
  Receive Date: 20181205
  Receipt Date: 20181205
  Transmission Date: 20190205
  Serious: Yes (Disabling, Other)
  Sender: FDA-Public Use
  Company Number: DE-PFIZER INC-2018497175

PATIENT
  Sex: Male

DRUGS (7)
  1. DILTIAZEM HCL [Concomitant]
     Active Substance: DILTIAZEM HYDROCHLORIDE
     Dosage: UNK
  2. BUDIAIR [Concomitant]
     Active Substance: BUDESONIDE
     Indication: ALVEOLITIS
     Dosage: UNK
  3. TAMSULOSIN [Concomitant]
     Active Substance: TAMSULOSIN
     Indication: PELVIC PAIN
     Dosage: UNK
  4. VOLTAREN RESINAT [DICLOFENAC RESINATE] [Concomitant]
     Indication: ANKYLOSING SPONDYLITIS
     Dosage: UNK
  5. BUDENOFALK [Concomitant]
     Active Substance: BUDESONIDE
     Indication: CROHN^S DISEASE
     Dosage: UNK
  6. PANTOPRAZOLE [Concomitant]
     Active Substance: PANTOPRAZOLE
     Dosage: UNK
  7. CELECOXIB. [Suspect]
     Active Substance: CELECOXIB
     Dosage: UNK
     Dates: start: 20181105, end: 20181107

REACTIONS (4)
  - Pyrexia [Unknown]
  - Impaired work ability [Unknown]
  - Intestinal haemorrhage [Unknown]
  - Arthralgia [Unknown]

NARRATIVE: CASE EVENT DATE: 20181105
